FAERS Safety Report 16253078 (Version 4)
Quarter: 2020Q4

REPORT INFORMATION
  Report Type: Spontaneous
  Country: US (occurrence: US)
  Receive Date: 20190429
  Receipt Date: 20201221
  Transmission Date: 20210113
  Serious: Yes (Hospitalization, Other)
  Sender: FDA-Public Use
  Company Number: US-SA-2019SA114380

PATIENT

DRUGS (17)
  1. FLUOCINONIDE. [Concomitant]
     Active Substance: FLUOCINONIDE
     Dosage: UNK UNK, PRN
  2. DUPIXENT [Suspect]
     Active Substance: DUPILUMAB
     Indication: DERMATITIS ATOPIC
     Dosage: 600 MG, 1X
     Route: 058
     Dates: start: 20190314, end: 20190314
  3. PROTOPIC [Concomitant]
     Active Substance: TACROLIMUS
     Indication: ECZEMA
     Dosage: 0.1 %, BID
  4. UREA. [Concomitant]
     Active Substance: UREA
     Indication: DRY SKIN
     Dosage: 40 %, BID
  5. METFORMIN HYDROCHLORIDE. [Concomitant]
     Active Substance: METFORMIN HYDROCHLORIDE
  6. DUPIXENT [Suspect]
     Active Substance: DUPILUMAB
     Dosage: 300 MG, QOW
     Route: 058
  7. LASIX [Concomitant]
     Active Substance: FUROSEMIDE
     Dosage: 40 MG, QD
  8. TACROLIMUS. [Concomitant]
     Active Substance: TACROLIMUS
  9. DUPIXENT [Suspect]
     Active Substance: DUPILUMAB
     Dosage: 600MG ,1X (2X300 MG)
     Route: 058
     Dates: start: 20190405, end: 20190405
  10. PROTOPIC [Concomitant]
     Active Substance: TACROLIMUS
     Dosage: 0.1 %, PRN
  11. UREA. [Concomitant]
     Active Substance: UREA
     Dosage: 40 %, PRN
  12. ALEVE [Concomitant]
     Active Substance: NAPROXEN SODIUM
  13. FLUOCINONIDE. [Concomitant]
     Active Substance: FLUOCINONIDE
     Indication: ECZEMA
     Dosage: UNK UNK, BID
  14. AMLODIPINE;OLMESARTAN [Concomitant]
     Active Substance: AMLODIPINE\OLMESARTAN
  15. LEVOTHYROXINE. [Concomitant]
     Active Substance: LEVOTHYROXINE
     Dosage: 25 UG, QD
  16. LOSARTAN. [Concomitant]
     Active Substance: LOSARTAN
     Dosage: 100 MG, QD
  17. LEVOTHYROXINE SODIUM. [Concomitant]
     Active Substance: LEVOTHYROXINE SODIUM

REACTIONS (7)
  - Rash [Recovered/Resolved]
  - Pneumonia [Recovering/Resolving]
  - Extra dose administered [Unknown]
  - Fatigue [Recovering/Resolving]
  - Product dose omission issue [Unknown]
  - Dry skin [Unknown]
  - COVID-19 [Recovering/Resolving]

NARRATIVE: CASE EVENT DATE: 20190405
